FAERS Safety Report 12183762 (Version 4)
Quarter: 2016Q2

REPORT INFORMATION
  Report Type: Spontaneous
  Country: US (occurrence: US)
  Receive Date: 20160316
  Receipt Date: 20160503
  Transmission Date: 20160815
  Serious: Yes (Hospitalization)
  Sender: FDA-Public Use
  Company Number: US-PFIZER INC-2016154896

PATIENT
  Age: 58 Year
  Sex: Male
  Weight: 70.3 kg

DRUGS (8)
  1. VFEND [Suspect]
     Active Substance: VORICONAZOLE
     Indication: ANTIFUNGAL TREATMENT
     Dosage: 200 MG, 2X/DAY
     Route: 048
     Dates: start: 20160203
  2. LEVOFLOXACIN. [Suspect]
     Active Substance: LEVOFLOXACIN
     Indication: ANTIFUNGAL TREATMENT
     Dosage: 500 MG, 1X/DAY
     Dates: start: 20160329
  3. LEVOFLOXACIN. [Suspect]
     Active Substance: LEVOFLOXACIN
     Indication: ANTIVIRAL TREATMENT
  4. PREDNISONE. [Suspect]
     Active Substance: PREDNISONE
     Indication: ABDOMINAL PAIN UPPER
     Dosage: UNK
  5. POTASSIUM [Concomitant]
     Active Substance: POTASSIUM
     Indication: BLOOD POTASSIUM
     Dosage: 500 TWICE A DAY
  6. ACYCLOVIR /00587301/ [Suspect]
     Active Substance: ACYCLOVIR
     Indication: ANTIVIRAL TREATMENT
     Dosage: UNK
  7. METOPROLOL TARTRATE. [Concomitant]
     Active Substance: METOPROLOL TARTRATE
     Indication: BLOOD PRESSURE MEASUREMENT
     Dosage: 12.5 MG, 1X/DAY (1/2 TABLET ONCE A DAY)
     Dates: start: 20160328
  8. DOCUSATE [Concomitant]
     Active Substance: DOCUSATE
     Indication: FAECES SOFT
     Dosage: 100 MG, 2X/DAY
     Dates: start: 20160331

REACTIONS (5)
  - Obstruction [Recovered/Resolved]
  - Hypoacusis [Not Recovered/Not Resolved]
  - Ear congestion [Not Recovered/Not Resolved]
  - Drug dose omission [Recovered/Resolved]
  - Weight decreased [Not Recovered/Not Resolved]
